FAERS Safety Report 8425935-4 (Version None)
Quarter: 2012Q2

REPORT INFORMATION
  Report Type: 
  Country: None (occurrence: None)
  Receive Date: 20120611
  Receipt Date: 20120606
  Transmission Date: 20120825
  Serious: Yes (Other)
  Sender: FDA-Public Use
  Company Number: US-BAYER-2012-056728

PATIENT
  Age: 38 Year
  Sex: Female

DRUGS (6)
  1. YASMIN [Suspect]
     Dosage: UNK
     Dates: start: 20090501, end: 20091201
  2. YASMIN [Suspect]
     Dosage: UNK
     Dates: start: 20050301, end: 20051101
  3. YASMIN [Suspect]
     Dosage: UNK
     Dates: start: 20060201, end: 20081001
  4. DROSPIRENONE AND ETHINYL ESTRADIOL [Suspect]
     Dosage: UNK
     Dates: start: 20081101, end: 20090401
  5. YASMIN [Suspect]
     Dosage: UNK
     Dates: start: 20100601, end: 20110501
  6. DROSPIRENONE AND ETHINYL ESTRADIOL [Suspect]
     Dosage: UNK
     Dates: start: 20100101, end: 20100501

REACTIONS (7)
  - EMOTIONAL DISTRESS [None]
  - PAIN [None]
  - INJURY [None]
  - NERVOUSNESS [None]
  - DEPRESSION [None]
  - CHOLECYSTECTOMY [None]
  - FEAR [None]
